FAERS Safety Report 16055510 (Version 1)
Quarter: 2019Q1

REPORT INFORMATION
  Report Type: Spontaneous
  Country: US (occurrence: US)
  Receive Date: 20190208
  Receipt Date: 20190208
  Transmission Date: 20190418
  Serious: Yes (Hospitalization)
  Sender: FDA-Public Use
  Company Number: None

PATIENT
  Age: 39 Year
  Sex: Male
  Weight: 65.77 kg

DRUGS (13)
  1. LITHIUM. [Concomitant]
     Active Substance: LITHIUM
  2. CLONIDINE. [Suspect]
     Active Substance: CLONIDINE
  3. BUPRENORPHINE. [Concomitant]
     Active Substance: BUPRENORPHINE
  4. RISPERIDONE. [Concomitant]
     Active Substance: RISPERIDONE
  5. TRIUMEQ [Suspect]
     Active Substance: ABACAVIR SULFATE\DOLUTEGRAVIR SODIUM\LAMIVUDINE
     Indication: HIV INFECTION
     Dosage: ?          QUANTITY:ONE;?
     Route: 048
     Dates: start: 201712
  6. ADDERALL [Concomitant]
     Active Substance: AMPHETAMINE ASPARTATE\AMPHETAMINE SULFATE\DEXTROAMPHETAMINE SACCHARATE\DEXTROAMPHETAMINE SULFATE
  7. VITAMIN D3 [Concomitant]
     Active Substance: CHOLECALCIFEROL
  8. XANAX [Concomitant]
     Active Substance: ALPRAZOLAM
  9. GABAPENTIN. [Concomitant]
     Active Substance: GABAPENTIN
  10. EMERGENC E [Concomitant]
  11. PANTOPRAZOLE [Concomitant]
     Active Substance: PANTOPRAZOLE
  12. PRO-AIR HPA [Concomitant]
  13. VITAMIN E [Concomitant]
     Active Substance: .ALPHA.-TOCOPHEROL

REACTIONS (28)
  - Dysarthria [None]
  - Diarrhoea [None]
  - Headache [None]
  - Dysphagia [None]
  - Urine output decreased [None]
  - Chromaturia [None]
  - Impaired healing [None]
  - Bronchitis [None]
  - Heart rate increased [None]
  - Ocular hyperaemia [None]
  - Skin disorder [None]
  - Cough [None]
  - Weight abnormal [None]
  - Rash [None]
  - Vomiting [None]
  - Abdominal pain [None]
  - Pain [None]
  - Decreased appetite [None]
  - Malaise [None]
  - Somnolence [None]
  - Memory impairment [None]
  - Nausea [None]
  - Bipolar disorder [None]
  - Fatigue [None]
  - Oropharyngeal pain [None]
  - Mood altered [None]
  - Depression [None]
  - Haematochezia [None]

NARRATIVE: CASE EVENT DATE: 20181221
